FAERS Safety Report 19981580 (Version 1)
Quarter: 2021Q4

REPORT INFORMATION
  Report Type: Spontaneous
  Country: US (occurrence: US)
  Receive Date: 20211022
  Receipt Date: 20211022
  Transmission Date: 20220304
  Serious: No
  Sender: FDA-Public Use
  Company Number: US-ALLERGAN-2111142US

PATIENT
  Age: 39 Year
  Sex: Female

DRUGS (6)
  1. RECTIV [Suspect]
     Active Substance: NITROGLYCERIN
     Indication: Rectal spasm
     Dosage: UNK
     Route: 061
     Dates: start: 20201225
  2. ARMOUR THYROID [Concomitant]
     Active Substance: THYROID, PORCINE
     Indication: Hypothyroidism
  3. Cinryze infusion [Concomitant]
     Indication: Hereditary angioedema with C1 esterase inhibitor deficiency
     Dosage: 2 MG, BI-WEEKLY
     Route: 042
  4. RUCONEST [Concomitant]
     Active Substance: HUMAN C1-ESTERASE INHIBITOR
     Indication: Hereditary angioedema with C1 esterase inhibitor deficiency
     Dosage: UNK, PRN
  5. FIRAZYR [Concomitant]
     Active Substance: ICATIBANT ACETATE
     Indication: Hereditary angioedema with C1 esterase inhibitor deficiency
  6. SYNTHROID [Concomitant]
     Active Substance: LEVOTHYROXINE SODIUM
     Indication: Hypothyroidism

REACTIONS (12)
  - Burning sensation [Not Recovered/Not Resolved]
  - Sebaceous glands overactivity [Not Recovered/Not Resolved]
  - Erythema [Not Recovered/Not Resolved]
  - Diarrhoea [Not Recovered/Not Resolved]
  - Facial paresis [Not Recovered/Not Resolved]
  - Pain [Not Recovered/Not Resolved]
  - Palpitations [Unknown]
  - Incorrect route of product administration [Unknown]
  - Off label use [Unknown]
  - Overdose [Unknown]
  - Hypersensitivity [Not Recovered/Not Resolved]
  - Rash [Not Recovered/Not Resolved]

NARRATIVE: CASE EVENT DATE: 20201225
